FAERS Safety Report 4932121-9 (Version None)
Quarter: 2006Q1

REPORT INFORMATION
  Report Type: 
  Country: None (occurrence: None)
  Receive Date: 20060227
  Receipt Date: 20060221
  Transmission Date: 20060701
  Serious: Yes (Death, Hospitalization)
  Sender: FDA-Public Use
  Company Number: TCI2005A04127

PATIENT
  Age: 81 Year
  Sex: Female

DRUGS (5)
  1. LANSOPRAZOLE [Suspect]
     Indication: REFLUX OESOPHAGITIS
     Dosage: 15 MG (15 MG, 1 IN 1 D) PER ORAL
     Route: 048
     Dates: start: 20040917, end: 20050818
  2. LAC B (LACTOBACILLUS BIFIDUS, LYOPHILIZED) (POWDER) [Concomitant]
  3. PREDNISOLONE [Concomitant]
  4. PROMAC (POLAPREZINC) (GRANULATE) [Concomitant]
  5. HERBESSER (DILTIAZEM HYDROCHLORIDE) (TABLETS) [Concomitant]

REACTIONS (13)
  - ABDOMINAL PAIN [None]
  - ANAEMIA [None]
  - ANTINUCLEAR ANTIBODY POSITIVE [None]
  - BLOOD ALKALINE PHOSPHATASE INCREASED [None]
  - CHOLANGITIS SCLEROSING [None]
  - DIARRHOEA [None]
  - DISSEMINATED INTRAVASCULAR COAGULATION [None]
  - FALSE POSITIVE LABORATORY RESULT [None]
  - HYPOPROTEINAEMIA [None]
  - INFECTION [None]
  - INTESTINAL ISCHAEMIA [None]
  - PNEUMONIA [None]
  - RESPIRATORY FAILURE [None]
